FAERS Safety Report 15186358 (Version 2)
Quarter: 2019Q1

REPORT INFORMATION
  Report Type: Report from Study
  Country: US (occurrence: US)
  Receive Date: 20180723
  Receipt Date: 20190130
  Transmission Date: 20190417
  Serious: No
  Sender: FDA-Public Use
  Company Number: US-EXELIXIS-CABO-18014057

PATIENT
  Sex: Female

DRUGS (25)
  1. VITAMIN D2 [Concomitant]
     Active Substance: ERGOCALCIFEROL
  2. NOVOLOG [Concomitant]
     Active Substance: INSULIN ASPART
  3. COMBIVENT [Concomitant]
     Active Substance: ALBUTEROL SULFATE\IPRATROPIUM BROMIDE
  4. CALCITROL [Concomitant]
     Active Substance: CALCITRIOL
  5. RANITIDINE. [Concomitant]
     Active Substance: RANITIDINE
  6. FLUTICASONE. [Concomitant]
     Active Substance: FLUTICASONE
  7. BIOTIN [Concomitant]
     Active Substance: BIOTIN
  8. FERROUS SULFATE. [Concomitant]
     Active Substance: FERROUS SULFATE
  9. AMOXICILLIN + CLAV. POTASSIUM [Concomitant]
     Active Substance: AMOXICILLIN\CLAVULANATE POTASSIUM
  10. ASPIRIN. [Concomitant]
     Active Substance: ASPIRIN
  11. PROLIA [Concomitant]
     Active Substance: DENOSUMAB
  12. TRAMADOL HCL [Concomitant]
     Active Substance: TRAMADOL HYDROCHLORIDE
  13. GLUCOSE [Concomitant]
     Active Substance: DEXTROSE
  14. PROPRANOLOL [Concomitant]
     Active Substance: PROPRANOLOL HYDROCHLORIDE
  15. LIDOCAINE. [Concomitant]
     Active Substance: LIDOCAINE
  16. VITAMIN D3 [Concomitant]
     Active Substance: CHOLECALCIFEROL
  17. MULTIVITAMINS COMBINATIONS [Concomitant]
  18. IBUPROFEN. [Concomitant]
     Active Substance: IBUPROFEN
  19. GABAPENTIN. [Concomitant]
     Active Substance: GABAPENTIN
  20. CABOMETYX [Suspect]
     Active Substance: CABOZANTINIB S-MALATE
     Indication: RENAL CANCER
     Dosage: 40 MG, QD
     Route: 048
     Dates: start: 20180419, end: 20180613
  21. CABOMETYX [Suspect]
     Active Substance: CABOZANTINIB S-MALATE
     Dosage: 20 MG, QD
     Route: 048
     Dates: start: 201806
  22. DOCUSATE SODIUM. [Concomitant]
     Active Substance: DOCUSATE SODIUM
  23. BASAGLAR [Concomitant]
     Active Substance: INSULIN GLARGINE
  24. NYSTATIN. [Concomitant]
     Active Substance: NYSTATIN
  25. CEPHALEXIN. [Concomitant]
     Active Substance: CEPHALEXIN

REACTIONS (14)
  - Acne [Unknown]
  - Nausea [Unknown]
  - Dry skin [Unknown]
  - Pain in extremity [Unknown]
  - Constipation [Unknown]
  - Rash [Unknown]
  - Rash pruritic [Unknown]
  - Decreased appetite [Unknown]
  - Skin ulcer [Unknown]
  - Neuropathy peripheral [Unknown]
  - Urine odour abnormal [Unknown]
  - Stomatitis [Unknown]
  - Bone pain [Unknown]
  - Fatigue [Unknown]

NARRATIVE: CASE EVENT DATE: 2018
